FAERS Safety Report 6405415-8 (Version None)
Quarter: 2009Q4

REPORT INFORMATION
  Report Type: 
  Country: None (occurrence: None)
  Receive Date: 20091019
  Receipt Date: 20091013
  Transmission Date: 20100525
  Serious: Yes (Death, Hospitalization, Other)
  Sender: FDA-Public Use
  Company Number: US-ELI_LILLY_AND_COMPANY-US200907006610

PATIENT
  Sex: Male
  Weight: 75.737 kg

DRUGS (7)
  1. ALIMTA [Suspect]
     Indication: LUNG ADENOCARCINOMA
     Dosage: 1000 MG, EVERY 21 DAYS
     Route: 042
     Dates: start: 20090612, end: 20090612
  2. ALIMTA [Suspect]
     Dosage: 920 MG, UNK
     Dates: start: 20090701, end: 20090710
  3. CARBOPLATIN [Concomitant]
     Indication: LUNG ADENOCARCINOMA
     Dosage: 450 MG, EVERY 28 DAYS
     Dates: start: 20090612, end: 20090701
  4. VITAMIN B-12 [Concomitant]
     Indication: VITAMIN SUPPLEMENTATION
     Dosage: 1000 MG, UNK
     Dates: start: 20090608, end: 20090701
  5. FOLATE [Concomitant]
     Indication: VITAMIN SUPPLEMENTATION
     Dosage: 1 MG, UNK
     Dates: start: 20090605, end: 20090701
  6. ZOMETA [Concomitant]
     Indication: METASTASES TO BONE
     Dosage: 3.5 MG, UNK
     Dates: start: 20090612, end: 20090701
  7. NEULASTA [Concomitant]
     Indication: PROPHYLAXIS
     Dosage: 6 MG, UNK
     Dates: start: 20090615, end: 20090702

REACTIONS (10)
  - ALANINE AMINOTRANSFERASE INCREASED [None]
  - ASPARTATE AMINOTRANSFERASE INCREASED [None]
  - BLOOD ALKALINE PHOSPHATASE INCREASED [None]
  - BLOOD BILIRUBIN INCREASED [None]
  - DIARRHOEA [None]
  - KLEBSIELLA SEPSIS [None]
  - MALIGNANT NEOPLASM PROGRESSION [None]
  - PANCYTOPENIA [None]
  - SYNCOPE [None]
  - VOMITING [None]
